FAERS Safety Report 8570249-5 (Version None)
Quarter: 2012Q3

REPORT INFORMATION
  Report Type: 
  Country: None (occurrence: None)
  Receive Date: 20120803
  Receipt Date: 20120731
  Transmission Date: 20120928
  Serious: Yes (Death, Other)
  Sender: FDA-Public Use
  Company Number: US-BAXTER-2012BAX013423

PATIENT
  Sex: Female

DRUGS (1)
  1. DIANEAL PD-2 W/ DEXTROSE 1.5% [Suspect]
     Indication: PERITONEAL DIALYSIS
     Route: 033
     Dates: end: 20120625

REACTIONS (5)
  - SYSTEMIC LUPUS ERYTHEMATOSUS [None]
  - CEREBROVASCULAR ACCIDENT [None]
  - BRAIN DEATH [None]
  - PNEUMONIA [None]
  - HEREDITARY DISORDER [None]
